FAERS Safety Report 6386569-9 (Version None)
Quarter: 2009Q4

REPORT INFORMATION
  Report Type: 
  Country: None (occurrence: None)
  Receive Date: 20091002
  Receipt Date: 20090320
  Transmission Date: 20100525
  Serious: No
  Sender: FDA-Public Use
  Company Number: US-ASTRAZENECA-2009UW07232

PATIENT
  Sex: Male

DRUGS (1)
  1. ARIMIDEX [Suspect]
     Route: 048

REACTIONS (2)
  - BACK PAIN [None]
  - INTERVERTEBRAL DISC DEGENERATION [None]
